FAERS Safety Report 4499102-3 (Version None)
Quarter: 2004Q4

REPORT INFORMATION
  Report Type: 
  Country: None (occurrence: None)
  Receive Date: 20041111
  Receipt Date: 20041105
  Transmission Date: 20050328
  Serious: Yes (Death, Hospitalization)
  Sender: FDA-Public Use
  Company Number: DE-MERCK-0411DEU00093

PATIENT
  Age: 74 Year
  Sex: Male

DRUGS (2)
  1. VIOXX [Suspect]
     Indication: OSTEOARTHRITIS
     Route: 048
     Dates: start: 20030101, end: 20040728
  2. VIOXX [Suspect]
     Indication: OSTEOPOROSIS
     Route: 048
     Dates: start: 20030101, end: 20040728

REACTIONS (8)
  - CORONARY ARTERY STENOSIS [None]
  - DEATH [None]
  - DEEP VEIN THROMBOSIS [None]
  - MITRAL VALVE STENOSIS [None]
  - PELVIC VENOUS THROMBOSIS [None]
  - PULMONARY MICROEMBOLI [None]
  - RENAL IMPAIRMENT [None]
  - VISUAL ACUITY REDUCED [None]
